FAERS Safety Report 10066457 (Version 2)
Quarter: 2014Q2

REPORT INFORMATION
  Report Type: Report from Study
  Country: US (occurrence: US)
  Receive Date: 20140408
  Receipt Date: 20140624
  Transmission Date: 20141212
  Serious: Yes (Other)
  Sender: FDA-Public Use
  Company Number: US-ALEXION-A200800604

PATIENT
  Sex: 0

DRUGS (2)
  1. SOLIRIS [Suspect]
     Indication: PAROXYSMAL NOCTURNAL HAEMOGLOBINURIA
     Dosage: UNK
     Route: 042
  2. BENADRYL                           /00000402/ [Concomitant]

REACTIONS (4)
  - Aplastic anaemia [Unknown]
  - Biopsy bone marrow abnormal [Unknown]
  - Myelodysplastic syndrome [Unknown]
  - Fatigue [Unknown]
